FAERS Safety Report 5019204-2 (Version None)
Quarter: 2006Q2

REPORT INFORMATION
  Report Type: 
  Country: None (occurrence: None)
  Receive Date: 20060606
  Receipt Date: 20060525
  Transmission Date: 20061013
  Serious: Yes (Death)
  Sender: FDA-Public Use
  Company Number: US-SANOFI-SYNTHELABO-A03200603423

PATIENT
  Age: 68 Year
  Sex: Female

DRUGS (11)
  1. LISINOPRIL [Concomitant]
     Dosage: UNK
     Route: 048
  2. DARVOCET [Concomitant]
     Dosage: UNK
     Route: 048
  3. METHOTREXATE [Concomitant]
     Dosage: UNK
     Route: 048
  4. OXYGEN [Concomitant]
  5. HYDROCHLOROTHIAZIDE [Concomitant]
     Dosage: UNK
     Route: 048
  6. PREDNISONE [Concomitant]
     Dosage: UNK
     Route: 048
  7. NORTRIPTYLINE HCL [Concomitant]
     Dosage: UNK
     Route: 048
  8. LOVASTATIN [Concomitant]
     Dosage: UNK
     Route: 048
  9. PLAVIX [Suspect]
     Indication: STENT PLACEMENT
     Route: 048
     Dates: start: 20030401
  10. ASPIRIN [Concomitant]
     Route: 048
  11. METOPROLOL [Concomitant]
     Dosage: UNK
     Route: 048

REACTIONS (2)
  - DEATH [None]
  - RESPIRATORY ARREST [None]
